FAERS Safety Report 10196269 (Version 1)
Quarter: 2014Q2

REPORT INFORMATION
  Report Type: Report from Study
  Country: US (occurrence: US)
  Receive Date: 20140527
  Receipt Date: 20140527
  Transmission Date: 20141212
  Serious: Yes (Hospitalization)
  Sender: FDA-Public Use
  Company Number: US-JNJFOC-20140512737

PATIENT
  Age: 12 Year
  Sex: Female
  Weight: 76 kg

DRUGS (10)
  1. REMICADE [Suspect]
     Indication: CROHN^S DISEASE
     Route: 042
     Dates: start: 20100831
  2. HUMIRA [Concomitant]
     Route: 065
     Dates: start: 20101028
  3. METHOTREXATE [Concomitant]
     Route: 065
  4. TAMIFLU [Concomitant]
     Route: 065
  5. XOPENEX [Concomitant]
     Route: 065
  6. AMOXICILLIN [Concomitant]
     Route: 065
  7. FOLIC ACID [Concomitant]
     Route: 065
  8. NEXIUM [Concomitant]
     Route: 065
  9. ZOFRAN [Concomitant]
     Route: 065
  10. IRON [Concomitant]
     Route: 065

REACTIONS (1)
  - Crohn^s disease [Recovered/Resolved]
